FAERS Safety Report 20432214 (Version 4)
Quarter: 2022Q1

REPORT INFORMATION
  Report Type: Spontaneous
  Country: NL (occurrence: NL)
  Receive Date: 20220204
  Receipt Date: 20220221
  Transmission Date: 20220424
  Serious: Yes (Other)
  Sender: FDA-Public Use
  Company Number: NL-ORGANON-O2201NLD002311

PATIENT
  Age: 22 Year
  Sex: Female

DRUGS (1)
  1. ETONOGESTREL [Suspect]
     Active Substance: ETONOGESTREL
     Dosage: 1 ROD, UPPER ARM
     Route: 059
     Dates: start: 202110, end: 2022

REACTIONS (2)
  - Device expulsion [Recovered/Resolved]
  - Complication associated with device [Recovered/Resolved]
